APPROVED DRUG PRODUCT: PRELUDIN
Active Ingredient: PHENMETRAZINE HYDROCHLORIDE
Strength: 50MG
Dosage Form/Route: TABLET, EXTENDED RELEASE;ORAL
Application: N011752 | Product #004
Applicant: BOEHRINGER INGELHEIM PHARMACEUTICALS INC
Approved: Approved Prior to Jan 1, 1982 | RLD: No | RS: No | Type: DISCN